FAERS Safety Report 8083327-4 (Version None)
Quarter: 2012Q1

REPORT INFORMATION
  Report Type: 
  Country: None (occurrence: None)
  Receive Date: 20120127
  Receipt Date: 20110113
  Transmission Date: 20120608
  Serious: No
  Sender: FDA-Public Use
  Company Number: US-ABBOTT-11P-163-0697590-00

PATIENT
  Age: 45 Year
  Sex: Female

DRUGS (5)
  1. WELCOLOL [Concomitant]
     Indication: DIARRHOEA
  2. LIBRAX [Concomitant]
     Indication: MUSCLE SPASMS
  3. LISINOPRIL [Concomitant]
     Indication: BLOOD PRESSURE
  4. NEXIUM [Concomitant]
     Indication: GASTROOESOPHAGEAL REFLUX DISEASE
  5. HUMIRA [Suspect]
     Indication: CROHN'S DISEASE
     Dates: start: 20100917

REACTIONS (1)
  - DRY SKIN [None]
